FAERS Safety Report 5278823-9 (Version None)
Quarter: 2007Q1

REPORT INFORMATION
  Report Type: 
  Country: None (occurrence: None)
  Receive Date: 20070322
  Receipt Date: 20070306
  Transmission Date: 20070707
  Serious: Yes (Death, Hospitalization)
  Sender: FDA-Public Use
  Company Number: 8018891

PATIENT
  Age: 73 Year
  Sex: Female

DRUGS (2)
  1. KEPPRA [Suspect]
     Indication: CONVULSION
     Dosage: 2/D PO
     Route: 048
     Dates: start: 20060701, end: 20061114
  2. A BLOOD PRESSURE MED [Concomitant]

REACTIONS (7)
  - CONDITION AGGRAVATED [None]
  - CONVULSION [None]
  - CORONARY ARTERY DISEASE [None]
  - DEMENTIA [None]
  - DYSKINESIA [None]
  - ENCEPHALOPATHY [None]
  - HALLUCINATION, VISUAL [None]
